FAERS Safety Report 14758528 (Version 3)
Quarter: 2018Q2

REPORT INFORMATION
  Report Type: Report from Study
  Country: US (occurrence: US)
  Receive Date: 20180413
  Receipt Date: 20180507
  Transmission Date: 20180711
  Serious: Yes (Hospitalization)
  Sender: FDA-Public Use
  Company Number: US-EISAI MEDICAL RESEARCH-EC-2018-037997

PATIENT
  Age: 50 Year
  Sex: Female
  Weight: 58 kg

DRUGS (16)
  1. ERIBULIN [Suspect]
     Active Substance: ERIBULIN
     Indication: TRIPLE NEGATIVE BREAST CANCER
     Route: 041
     Dates: start: 20180307, end: 20180328
  2. LUNESTA [Concomitant]
     Active Substance: ESZOPICLONE
  3. MULTIVITAMIN [Concomitant]
     Active Substance: VITAMINS
  4. ZOFRAN [Concomitant]
     Active Substance: ONDANSETRON HYDROCHLORIDE
  5. POLYCARBOPHIL [Concomitant]
     Active Substance: POLYCARBOPHIL
  6. MS CONTIN [Concomitant]
     Active Substance: MORPHINE SULFATE
  7. EMLA [Concomitant]
     Active Substance: LIDOCAINE\PRILOCAINE
  8. THERMAZENE [Concomitant]
     Active Substance: SILVER SULFADIAZINE
  9. K-DUR [Concomitant]
     Active Substance: POTASSIUM CHLORIDE
  10. OSCAL [Concomitant]
     Active Substance: CALCIUM CARBONATE
  11. KEFLEX [Concomitant]
     Active Substance: CEPHALEXIN
  12. BENADRYL [Concomitant]
     Active Substance: DIPHENHYDRAMINE HYDROCHLORIDE
  13. HEPARIN [Concomitant]
     Active Substance: HEPARIN SODIUM
  14. ROXICET [Concomitant]
     Active Substance: ACETAMINOPHEN\OXYCODONE HYDROCHLORIDE
  15. VITAMIN B6 [Concomitant]
     Active Substance: PYRIDOXINE HYDROCHLORIDE
  16. VITAMIN D3 [Concomitant]
     Active Substance: CHOLECALCIFEROL

REACTIONS (1)
  - Cellulitis [Recovering/Resolving]

NARRATIVE: CASE EVENT DATE: 20180330
